FAERS Safety Report 9960555 (Version 1)
Quarter: 2014Q1

REPORT INFORMATION
  Report Type: Spontaneous
  Country: US (occurrence: None)
  Receive Date: 20140304
  Receipt Date: 20140304
  Transmission Date: 20141002
  Serious: Yes (Life-Threatening, Hospitalization)
  Sender: FDA-Public Use
  Company Number: None

PATIENT
  Age: 33 Year
  Sex: Male
  Weight: 90.72 kg

DRUGS (3)
  1. EFFEXOR [Suspect]
     Indication: ANXIETY
     Dosage: EFFEXOR 3 75 MG PILLS, ONCE DAILY TAKEN BY MOUTH
     Route: 048
     Dates: start: 20131202, end: 20140114
  2. EFFEXOR [Suspect]
     Indication: DEPRESSION
     Dosage: EFFEXOR 3 75 MG PILLS, ONCE DAILY TAKEN BY MOUTH
     Route: 048
     Dates: start: 20131202, end: 20140114
  3. EFFEXOR [Suspect]
     Indication: POST-TRAUMATIC STRESS DISORDER
     Dosage: EFFEXOR 3 75 MG PILLS, ONCE DAILY TAKEN BY MOUTH
     Route: 048
     Dates: start: 20131202, end: 20140114

REACTIONS (2)
  - Suicide attempt [None]
  - Paraesthesia [None]
